FAERS Safety Report 8603768-3 (Version None)
Quarter: 2012Q3

REPORT INFORMATION
  Report Type: 
  Country: None (occurrence: None)
  Receive Date: 20120817
  Receipt Date: 20120802
  Transmission Date: 20120928
  Serious: No
  Sender: FDA-Public Use
  Company Number: US-ASTRAZENECA-2012SE38271

PATIENT
  Age: 48 Year
  Sex: Male

DRUGS (3)
  1. LITHIUM CARBONATE [Concomitant]
  2. SEROQUEL [Suspect]
     Indication: BIPOLAR DISORDER
     Route: 048
     Dates: start: 20120501
  3. DOPLIN [Concomitant]

REACTIONS (3)
  - SUBCUTANEOUS ABSCESS [None]
  - SWELLING [None]
  - MYALGIA [None]
